FAERS Safety Report 7555886-9 (Version None)
Quarter: 2011Q2

REPORT INFORMATION
  Report Type: 
  Country: None (occurrence: None)
  Receive Date: 20110618
  Receipt Date: 20110120
  Transmission Date: 20111010
  Serious: Yes (Hospitalization, Other)
  Sender: FDA-Public Use
  Company Number: US-BAYER-201027372NA

PATIENT
  Age: 21 Year
  Sex: Female
  Weight: 58.957 kg

DRUGS (12)
  1. METFORMIN HCL [Concomitant]
     Dosage: 1000 MG, UNK
  2. YASMIN [Suspect]
     Indication: PRODUCT USED FOR UNKNOWN INDICATION
     Dosage: UNK UNK, QD
     Route: 048
     Dates: start: 20070101, end: 20090801
  3. CELEBREX [Concomitant]
     Dosage: 200 MG, UNK
  4. BORIC ACID [Concomitant]
     Dosage: 600 MG, UNK
  5. BENZONATATE [Concomitant]
     Dosage: 100 MG, UNK
  6. LEVOTHYROXINE SODIUM [Concomitant]
     Dosage: 100 MCG/24HR, UNK
  7. DIOVAN HCT [Concomitant]
     Dosage: 160 MG, UNK
  8. FLUCONAZOLE [Concomitant]
     Dosage: 150 MG, UNK
  9. POTASSIUM [POTASSIUM] [Concomitant]
     Dosage: 20 MEQ, UNK
  10. YAZ [Suspect]
     Indication: PRODUCT USED FOR UNKNOWN INDICATION
     Dosage: UNK UNK, QD
     Route: 048
     Dates: start: 20070101, end: 20090801
  11. AMOXICILLIN [Concomitant]
     Dosage: 875 MG, UNK
  12. FUROSEMIDE [Concomitant]
     Dosage: 20 MG, UNK

REACTIONS (2)
  - PULMONARY EMBOLISM [None]
  - INJURY [None]
